FAERS Safety Report 4576426-2 (Version None)
Quarter: 2005Q1

REPORT INFORMATION
  Report Type: 
  Country: None (occurrence: None)
  Receive Date: 20050207
  Receipt Date: 20050124
  Transmission Date: 20050727
  Serious: Yes (Life-Threatening)
  Sender: FDA-Public Use
  Company Number: SP-2005-002035

PATIENT
  Age: 85 Year
  Sex: Female

DRUGS (1)
  1. OLMETEC [Suspect]
     Indication: HYPERTENSION
     Dosage: 10 MG QD PO
     Route: 048
     Dates: start: 20041130, end: 20041204

REACTIONS (3)
  - MONOPLEGIA [None]
  - TRANSIENT ISCHAEMIC ATTACK [None]
  - VERTIGO [None]
